FAERS Safety Report 21569947 (Version 1)
Quarter: 2022Q4

REPORT INFORMATION
  Report Type: Spontaneous
  Country: US (occurrence: US)
  Receive Date: 20221109
  Receipt Date: 20221109
  Transmission Date: 20230112
  Serious: Yes (Other)
  Sender: FDA-Public Use
  Company Number: US-SPECGX-T202202286

PATIENT
  Age: 37 Year
  Sex: Male

DRUGS (1)
  1. FENTANYL CITRATE [Suspect]
     Active Substance: FENTANYL CITRATE
     Indication: Product used for unknown indication
     Dosage: UNK
     Route: 065

REACTIONS (7)
  - Road traffic accident [Unknown]
  - Impaired driving ability [Unknown]
  - Overdose [Unknown]
  - Dysarthria [Unknown]
  - Gait disturbance [Unknown]
  - Nystagmus [Unknown]
  - Somnolence [Unknown]
